FAERS Safety Report 4478348-4 (Version None)
Quarter: 2004Q4

REPORT INFORMATION
  Report Type: 
  Country: None (occurrence: None)
  Receive Date: 20041019
  Receipt Date: 20041011
  Transmission Date: 20050328
  Serious: Yes (Hospitalization, Other)
  Sender: FDA-Public Use
  Company Number: US-BRISTOL-MYERS SQUIBB COMPANY-12728663

PATIENT
  Age: 90 Year
  Sex: Female

DRUGS (4)
  1. COUMADIN [Suspect]
     Dates: end: 20040901
  2. FEOSOL [Suspect]
     Indication: HAEMOGLOBIN DECREASED
     Route: 048
     Dates: start: 20040701
  3. DILTIAZEM HCL [Concomitant]
  4. TILACTASE [Concomitant]

REACTIONS (2)
  - DIARRHOEA [None]
  - HAEMOGLOBIN DECREASED [None]
